FAERS Safety Report 11341276 (Version 1)
Quarter: 2015Q3

REPORT INFORMATION
  Report Type: Spontaneous
  Country: US (occurrence: None)
  Receive Date: 20150803
  Receipt Date: 20150803
  Transmission Date: 20151125
  Serious: No
  Sender: FDA-Public Use
  Company Number: None

PATIENT
  Age: 50 Year
  Sex: Female
  Weight: 74.84 kg

DRUGS (3)
  1. TESTOSTERONE PELLET [Suspect]
     Active Substance: TESTOSTERONE
     Dates: start: 20150706
  2. VITAMIN DRINK [Concomitant]
  3. VITAMINS D [Concomitant]

REACTIONS (4)
  - Nausea [None]
  - Pain in extremity [None]
  - Implant site pain [None]
  - Muscle spasms [None]

NARRATIVE: CASE EVENT DATE: 20150706
